FAERS Safety Report 21513011 (Version 4)
Quarter: 2022Q4

REPORT INFORMATION
  Report Type: Report from Study
  Country: US (occurrence: US)
  Receive Date: 20221027
  Receipt Date: 20221228
  Transmission Date: 20230113
  Serious: Yes (Hospitalization)
  Sender: FDA-Public Use
  Company Number: US-002147023-NVSC2022US241553

PATIENT
  Sex: Female

DRUGS (1)
  1. COSENTYX [Suspect]
     Active Substance: SECUKINUMAB
     Indication: Psoriasis
     Dosage: UNK, QW (WEEKLY DOSES)
     Route: 058

REACTIONS (3)
  - Bronchitis [Unknown]
  - Cough [Unknown]
  - Therapeutic product effect incomplete [Unknown]
